FAERS Safety Report 9607537 (Version 1)
Quarter: 2013Q4

REPORT INFORMATION
  Report Type: Spontaneous
  Country: None (occurrence: None)
  Receive Date: 20131004
  Receipt Date: 20131004
  Transmission Date: 20140711
  Serious: Yes (Hospitalization)
  Sender: FDA-Public Use
  Company Number: 13-1803

PATIENT
  Age: 66 Year
  Sex: Male
  Weight: 64 kg

DRUGS (7)
  1. NT 201 (INJECTION) (BOTULINUM NEUROTOXIN TYPE A FREE OF COMPLEXING PROTEINS) [Suspect]
     Indication: MUSCLE SPASTICITY
     Dosage: 1 IN 1 TOTAL
     Route: 030
     Dates: start: 20130523, end: 20130523
  2. PLACEBO [Suspect]
     Dosage: 1 IN 1 TOTAL
     Route: 030
     Dates: start: 20130523, end: 20130523
  3. EBIXA (MEMANTINE HYDROCHLORIDE) (MEMANTINE) [Concomitant]
  4. ENELBIN /00247502/ (NAFTIDROFURYL OXALATE) (NAFTIDROFURYL OXALATE) [Concomitant]
  5. GODASAL (PAYNOCIL) (ACTEYLSALICYLIC ACID, GLYCINE) [Concomitant]
  6. TORVAZIN (ATOVASTATIN CALCIUM) (ATORVASTATIN CALCIUM) [Concomitant]
  7. BACLOFEN (BACLOFEN) [Concomitant]

REACTIONS (12)
  - Muscular weakness [None]
  - Lacunar infarction [None]
  - Condition aggravated [None]
  - Oliguria [None]
  - Cerebral arteriosclerosis [None]
  - Cerebral atrophy [None]
  - Encephalopathy [None]
  - Mucous membrane disorder [None]
  - Ischaemic stroke [None]
  - Disease recurrence [None]
  - Aortic arteriosclerosis [None]
  - Osteoporosis [None]
